FAERS Safety Report 4910368-5 (Version None)
Quarter: 2006Q1

REPORT INFORMATION
  Report Type: 
  Country: None (occurrence: None)
  Receive Date: 20060209
  Receipt Date: 20060131
  Transmission Date: 20060701
  Serious: Yes (Hospitalization)
  Sender: FDA-Public Use
  Company Number: 2006-BP-01152RO

PATIENT
  Age: 46 Year
  Sex: Female

DRUGS (5)
  1. METHOTREXATE [Suspect]
     Indication: RHEUMATOID ARTHRITIS
     Dosage: 10 MG/WK
  2. INFLIXIMAB (INFLIXIMAB) [Suspect]
     Indication: RHEUMATOID ARTHRITIS
     Dosage: 3 MG/KG TWICE A MONTH
  3. FUROSEMIDE [Concomitant]
  4. OLMESARTAN (OLMESARTAN) [Concomitant]
  5. HYDROCODONE BITARTRATE [Concomitant]

REACTIONS (9)
  - BLOOD PH INCREASED [None]
  - CHLAMYDIAL INFECTION [None]
  - FLUSHING [None]
  - HEART RATE INCREASED [None]
  - HYPOXIA [None]
  - MONOCYTE PERCENTAGE INCREASED [None]
  - PNEUMONIA [None]
  - PO2 DECREASED [None]
  - RASH [None]
